FAERS Safety Report 23895942 (Version 2)
Quarter: 2024Q2

REPORT INFORMATION
  Report Type: Report from Study
  Country: US (occurrence: US)
  Receive Date: 20240524
  Receipt Date: 20240619
  Transmission Date: 20240715
  Serious: Yes (Other)
  Sender: FDA-Public Use
  Company Number: US-UCBSA-2024019818

PATIENT
  Age: 68 Year
  Sex: Female

DRUGS (27)
  1. BIMEKIZUMAB [Suspect]
     Active Substance: BIMEKIZUMAB
     Indication: Psoriasis
     Dosage: 320 MILLIGRAM, EV 4 WEEKS
     Route: 058
     Dates: start: 20240201
  2. BIMEKIZUMAB [Suspect]
     Active Substance: BIMEKIZUMAB
     Dosage: 320 MILLIGRAM, EV 8 WEEKS
     Route: 058
  3. CALCIPOTRIENE [Concomitant]
     Active Substance: CALCIPOTRIENE
     Indication: Psoriasis
     Dosage: 0.005 PERCENT, 2X/DAY (BID)
     Dates: start: 20111219
  4. CALCIPOTRIENE [Concomitant]
     Active Substance: CALCIPOTRIENE
     Dosage: 0.005 PERCENT, 2X/DAY (BID)
     Route: 061
     Dates: start: 20150805
  5. CALCIPOTRIENE [Concomitant]
     Active Substance: CALCIPOTRIENE
     Dosage: 0.005 PERCENT, 2X/DAY (BID)
     Route: 061
     Dates: start: 20150810
  6. CALCIPOTRIENE [Concomitant]
     Active Substance: CALCIPOTRIENE
     Dosage: 0.005 PERCENT, 2X/DAY (BID)
     Route: 061
     Dates: start: 20220726
  7. CALCIPOTRIENE [Concomitant]
     Active Substance: CALCIPOTRIENE
     Dosage: 1 GRAM, ONCE DAILY (QD)
     Route: 061
     Dates: start: 20230517
  8. CALCIPOTRIENE [Concomitant]
     Active Substance: CALCIPOTRIENE
     Dosage: 0.005 PERCENT, ONCE DAILY (QD)
     Route: 061
     Dates: start: 20230727
  9. CALCIPOTRIENE [Concomitant]
     Active Substance: CALCIPOTRIENE
     Dosage: 0.005 PERCENT, 2X/DAY (BID)
     Route: 061
     Dates: start: 20240221
  10. CLINDAMYCIN PHOSPHATE [Concomitant]
     Active Substance: CLINDAMYCIN PHOSPHATE
     Indication: Product used for unknown indication
     Dosage: 1 PERCENT, 2X/DAY (BID)
     Route: 061
     Dates: start: 20120629
  11. CLINDAMYCIN PHOSPHATE [Concomitant]
     Active Substance: CLINDAMYCIN PHOSPHATE
     Dosage: 1 PERCENT, ONCE DAILY (QD)
     Route: 061
     Dates: start: 20190724
  12. CLINDAMYCIN PHOSPHATE [Concomitant]
     Active Substance: CLINDAMYCIN PHOSPHATE
     Dosage: 1 PERCENT, ONCE DAILY (QD)
     Route: 061
     Dates: start: 20220726
  13. SYNALAR [Concomitant]
     Active Substance: FLUOCINOLONE ACETONIDE
     Dosage: 0.01 PERCENT, 2X/DAY (BID)
     Route: 061
     Dates: start: 20190724
  14. FLUOCINOLONE ACETONIDE [Concomitant]
     Active Substance: FLUOCINOLONE ACETONIDE
     Indication: Product used for unknown indication
     Dosage: 0.05 PERCENT, ONCE DAILY (QD)
     Route: 061
     Dates: start: 20161111
  15. FLUOCINOLONE ACETONIDE [Concomitant]
     Active Substance: FLUOCINOLONE ACETONIDE
     Dosage: 0.01 PERCENT
     Dates: start: 20111219
  16. FLUOCINOLONE ACETONIDE [Concomitant]
     Active Substance: FLUOCINOLONE ACETONIDE
     Dosage: 0.01 PERCENT, ONCE DAILY (QD)
     Route: 061
     Dates: start: 20130222
  17. FLUOCINOLONE ACETONIDE [Concomitant]
     Active Substance: FLUOCINOLONE ACETONIDE
     Dosage: 0.01 PERCENT, ONCE DAILY (QD)
     Route: 061
     Dates: start: 20141009
  18. TACLONEX [Concomitant]
     Active Substance: BETAMETHASONE DIPROPIONATE\CALCIPOTRIENE\CALCIPOTRIENE HYDRATE
     Indication: Product used for unknown indication
     Dosage: 0.005-0.064 %, ONCE DAILY (QD)
     Route: 061
     Dates: start: 20120110
  19. OLUX [Concomitant]
     Active Substance: CLOBETASOL PROPIONATE
     Indication: Product used for unknown indication
     Dosage: 0.05 PERCENT, 2X/DAY (BID)
     Route: 061
     Dates: start: 20120629
  20. HYDROQUINONE [Concomitant]
     Active Substance: HYDROQUINONE
     Indication: Product used for unknown indication
     Dosage: 4 PERCENT, 2X/DAY (BID)
  21. DOVONEX [Concomitant]
     Active Substance: CALCIPOTRIENE
     Indication: Product used for unknown indication
     Dosage: 0.005 PERCENT, 2X/DAY (BID)
     Dates: start: 20150507
  22. TRIAMCINOLONE ACETONIDE [Concomitant]
     Active Substance: TRIAMCINOLONE ACETONIDE
     Indication: Product used for unknown indication
     Dosage: 0.15 PERCENT, 2X/DAY (BID)
     Route: 061
     Dates: start: 20151204
  23. OTEZLA [Concomitant]
     Active Substance: APREMILAST
     Indication: Product used for unknown indication
     Dosage: 1 DOSAGE FORM, 2X/DAY (BID)
     Route: 048
  24. TRETINOIN [Concomitant]
     Active Substance: TRETINOIN
     Indication: Product used for unknown indication
     Dosage: 0.025 PERCENT
     Route: 061
     Dates: start: 20161111
  25. COSENTYX [Concomitant]
     Active Substance: SECUKINUMAB
     Indication: Product used for unknown indication
     Dosage: 150 MILLIGRAM PER MILLILITRE, WEEKLY (QW)
     Route: 058
     Dates: start: 20180314
  26. COSENTYX [Concomitant]
     Active Substance: SECUKINUMAB
     Dosage: 150 MILLIGRAM PER MILLILITRE, MONTHLY (QM)
     Route: 058
     Dates: start: 20181119
  27. ECONAZOLE NITRATE [Concomitant]
     Active Substance: ECONAZOLE NITRATE
     Indication: Product used for unknown indication
     Dosage: 1 PERCENT, 2X/DAY (BID)
     Route: 061
     Dates: start: 20181121

REACTIONS (5)
  - Abdominal pain upper [Recovered/Resolved]
  - Tremor [Recovered/Resolved]
  - Nasal dryness [Recovered/Resolved]
  - Dry mouth [Recovered/Resolved]
  - Vulvovaginal mycotic infection [Recovered/Resolved]

NARRATIVE: CASE EVENT DATE: 20240405
